FAERS Safety Report 9698348 (Version 1)
Quarter: 2013Q4

REPORT INFORMATION
  Report Type: Report from Study
  Country: KR (occurrence: KR)
  Receive Date: 20131120
  Receipt Date: 20131120
  Transmission Date: 20140711
  Serious: Yes (Death)
  Sender: FDA-Public Use
  Company Number: KR-ABBVIE-13P-090-1170243-00

PATIENT
  Age: 34 Year
  Sex: Female

DRUGS (6)
  1. KALETRA 200/50 [Suspect]
     Indication: HIV INFECTION
     Route: 048
     Dates: start: 20130819
  2. 3TC/AZT [Concomitant]
     Indication: ANTIRETROVIRAL THERAPY
     Dates: start: 20130819
  3. FULLGRAM [Concomitant]
     Indication: PNEUMOCYSTIS JIROVECII PNEUMONIA
     Route: 042
     Dates: start: 20130813, end: 20130827
  4. TAPOCIN [Concomitant]
     Indication: PNEUMOCYSTIS JIROVECII PNEUMONIA
     Route: 042
     Dates: start: 20130816, end: 20130827
  5. MEROPEN [Concomitant]
     Indication: PNEUMOCYSTIS JIROVECII PNEUMONIA
     Dates: start: 20130819, end: 20130827
  6. SOLONDO [Concomitant]
     Indication: PNEUMOCYSTIS JIROVECII PNEUMONIA
     Route: 048
     Dates: start: 20130820, end: 20130826

REACTIONS (1)
  - Pneumocystis jirovecii pneumonia [Fatal]
